FAERS Safety Report 23565162 (Version 7)
Quarter: 2025Q1

REPORT INFORMATION
  Report Type: Spontaneous
  Country: US (occurrence: US)
  Receive Date: 20240226
  Receipt Date: 20250217
  Transmission Date: 20250408
  Serious: Yes (Hospitalization, Other)
  Sender: PFIZER
  Company Number: US-PFIZER INC-PV202400024587

PATIENT
  Age: 76 Year
  Sex: Female
  Weight: 63.492 kg

DRUGS (6)
  1. IBRANCE [Suspect]
     Active Substance: PALBOCICLIB
     Indication: Breast cancer metastatic
     Route: 048
  2. IBRANCE [Suspect]
     Active Substance: PALBOCICLIB
     Indication: Small cell lung cancer
  3. IBRANCE [Suspect]
     Active Substance: PALBOCICLIB
     Indication: Therapeutic drug monitoring
  4. VERZENIO [Suspect]
     Active Substance: ABEMACICLIB
     Indication: Breast cancer
  5. VERZENIO [Suspect]
     Active Substance: ABEMACICLIB
     Indication: Small cell lung cancer
  6. ALPRAZOLAM [Concomitant]
     Active Substance: ALPRAZOLAM
     Indication: Hypertension
     Route: 048

REACTIONS (4)
  - Norovirus infection [Unknown]
  - Pharyngeal injury [Not Recovered/Not Resolved]
  - Malaise [Unknown]
  - Asthenia [Unknown]
